FAERS Safety Report 5919465-9 (Version None)
Quarter: 2008Q4

REPORT INFORMATION
  Report Type: 
  Country: None (occurrence: None)
  Receive Date: 20081015
  Receipt Date: 20081010
  Transmission Date: 20090506
  Serious: Yes (Death)
  Sender: FDA-Public Use
  Company Number: PHBS2008MX06005

PATIENT
  Sex: Male
  Weight: 0.63 kg

DRUGS (6)
  1. METOPROLOL TARTRATE [Suspect]
     Route: 064
  2. POTASSIUM CHLORIDE [Suspect]
     Route: 064
  3. HEPARIN [Suspect]
     Route: 064
  4. DIGOXIN [Suspect]
     Route: 064
  5. FUROSEMIDE [Suspect]
     Route: 064
  6. ACETYLSALICYLIC ACID SRT [Suspect]
     Route: 064

REACTIONS (4)
  - APGAR SCORE LOW [None]
  - DRUG EXPOSURE DURING PREGNANCY [None]
  - PREMATURE BABY [None]
  - SMALL FOR DATES BABY [None]
